FAERS Safety Report 6328316-2 (Version None)
Quarter: 2009Q3

REPORT INFORMATION
  Report Type: 
  Country: None (occurrence: None)
  Receive Date: 20090825
  Receipt Date: 20090615
  Transmission Date: 20100115
  Serious: No
  Sender: FDA-Public Use
  Company Number: US-ABBOTT-09P-163-0574558-00

PATIENT
  Sex: Male

DRUGS (3)
  1. SYNTHROID [Suspect]
     Indication: THYROIDECTOMY
     Route: 048
     Dates: start: 20080725
  2. SYNTHROID [Suspect]
     Indication: NEOPLASM MALIGNANT
  3. RADIOACTIVE IODINE [Concomitant]
     Indication: THYROIDECTOMY

REACTIONS (5)
  - ASTHENIA [None]
  - BLOOD THYROID STIMULATING HORMONE DECREASED [None]
  - FATIGUE [None]
  - PALPITATIONS [None]
  - TREMOR [None]
